FAERS Safety Report 4452133-1 (Version None)
Quarter: 2004Q3

REPORT INFORMATION
  Report Type: 
  Country: None (occurrence: None)
  Receive Date: 20040917
  Receipt Date: 20040907
  Transmission Date: 20050211
  Serious: Yes (Death)
  Sender: FDA-Public Use
  Company Number: US-JNJFOC-20040902132

PATIENT
  Age: 4 Year

DRUGS (1)
  1. TOPAMAX [Suspect]

REACTIONS (4)
  - BODY TEMPERATURE INCREASED [None]
  - DEHYDRATION [None]
  - HYPERTHERMIA MALIGNANT [None]
  - VIRAL INFECTION [None]
